FAERS Safety Report 26072283 (Version 1)
Quarter: 2025Q4

REPORT INFORMATION
  Report Type: Spontaneous
  Country: EU (occurrence: EU)
  Receive Date: 20251120
  Receipt Date: 20251120
  Transmission Date: 20260117
  Serious: Yes (Other)
  Sender: GE HEALTHCARE
  Company Number: EU-GE HEALTHCARE-2025CSU016220

PATIENT

DRUGS (1)
  1. SODIUM IODIDE I-123 [Suspect]
     Active Substance: SODIUM IODIDE I-123
     Indication: Therapeutic procedure
     Dosage: UNK, TOTAL
     Route: 065

REACTIONS (3)
  - Sensation of foreign body [Unknown]
  - Product physical issue [Recovered/Resolved]
  - Suspected product contamination [Recovered/Resolved]
